FAERS Safety Report 6306910-2 (Version None)
Quarter: 2009Q3

REPORT INFORMATION
  Report Type: 
  Country: None (occurrence: None)
  Receive Date: 20090811
  Receipt Date: 20090811
  Transmission Date: 20100115
  Serious: Yes (Life-Threatening)
  Sender: FDA-Public Use
  Company Number: None

PATIENT
  Sex: Male
  Weight: 113.3993 kg

DRUGS (2)
  1. DURAGESIC-100 [Suspect]
     Indication: PAIN
     Dosage: 100 1 EVERY 72 HOURS TRANSDERMAL
     Route: 062
     Dates: start: 20061001, end: 20070331
  2. DURAGESIC-50 [Suspect]
     Indication: PAIN
     Dosage: 50 1 EVERY 72 HOURS TRANSDERMAL
     Route: 062
     Dates: start: 20070315, end: 20070331

REACTIONS (4)
  - AMNESIA [None]
  - DRUG WITHDRAWAL SYNDROME [None]
  - HALLUCINATION [None]
  - ROAD TRAFFIC ACCIDENT [None]
